FAERS Safety Report 7021883-5 (Version None)
Quarter: 2010Q3

REPORT INFORMATION
  Report Type: 
  Country: None (occurrence: None)
  Receive Date: 20100928
  Receipt Date: 20100916
  Transmission Date: 20110219
  Serious: Yes (Hospitalization)
  Sender: FDA-Public Use
  Company Number: 2010US001160

PATIENT
  Age: 50 Year
  Sex: Male

DRUGS (18)
  1. AMBISOME [Suspect]
     Indication: SYSTEMIC MYCOSIS
     Dosage: SEE IMAGE
     Route: 041
     Dates: start: 20090213, end: 20090301
  2. AMBISOME [Suspect]
     Indication: SYSTEMIC MYCOSIS
     Dosage: SEE IMAGE
     Route: 041
     Dates: start: 20090306, end: 20090426
  3. AMBISOME [Suspect]
     Indication: SYSTEMIC MYCOSIS
     Dosage: SEE IMAGE
     Route: 041
     Dates: start: 20090428, end: 20090505
  4. AMBISOME [Suspect]
     Indication: SYSTEMIC MYCOSIS
     Dosage: SEE IMAGE
     Route: 041
     Dates: start: 20090206, end: 20100212
  5. AMBISOME [Suspect]
     Indication: SYSTEMIC MYCOSIS
     Dosage: SEE IMAGE
     Route: 041
     Dates: start: 20100310, end: 20100321
  6. AMBISOME [Suspect]
     Indication: SYSTEMIC MYCOSIS
     Dosage: SEE IMAGE
     Route: 041
     Dates: start: 20090801
  7. AMBISOME [Suspect]
     Indication: SYSTEMIC MYCOSIS
     Dosage: SEE IMAGE
     Route: 041
     Dates: start: 20091214
  8. ZANTAC [Suspect]
     Indication: UPPER GASTROINTESTINAL HAEMORRHAGE
     Dosage: 50 MG, UID/QD
     Dates: start: 20081206, end: 20090511
  9. OMEPRAZOLE [Suspect]
     Indication: UPPER GASTROINTESTINAL HAEMORRHAGE
     Dosage: 20 MG, UID/QD
     Dates: start: 20081206, end: 20090511
  10. CEFAZOLIN SODIUM [Suspect]
     Indication: INFECTION PROPHYLAXIS
     Dosage: 1 G, UID/QD, IV NOS
     Route: 042
     Dates: start: 20090421, end: 20090423
  11. RED BLOOD CELLS [Concomitant]
  12. PRIMAXIN [Concomitant]
  13. MINOCYCLINE HCL [Concomitant]
  14. PIPERACILLIN SODIUM [Concomitant]
  15. UNASYN (AMPICILLIN SODIUM, SULBACTAM SODIUM) [Concomitant]
  16. PENFILL R (INSULIN HUMAN) [Concomitant]
  17. ZOSYN [Concomitant]
  18. SULPERAZON Z(SULBACTAM SODIUM) [Concomitant]

REACTIONS (10)
  - CANDIDA TEST POSITIVE [None]
  - DRUG RESISTANCE [None]
  - DYSPNOEA [None]
  - GENERAL PHYSICAL HEALTH DETERIORATION [None]
  - HAEMODIALYSIS-INDUCED SYMPTOM [None]
  - LABORATORY TEST ABNORMAL [None]
  - NEPHROGENIC ANAEMIA [None]
  - PANCYTOPENIA [None]
  - PYREXIA [None]
  - SYSTEMIC MYCOSIS [None]
